FAERS Safety Report 8206175-0 (Version None)
Quarter: 2012Q1

REPORT INFORMATION
  Report Type: 
  Country: None (occurrence: None)
  Receive Date: 20120313
  Receipt Date: 20120306
  Transmission Date: 20120608
  Serious: Yes (Life-Threatening, Other)
  Sender: FDA-Public Use
  Company Number: IL-ROCHE-1037397

PATIENT
  Age: 63 Year
  Sex: Male

DRUGS (11)
  1. LEVOTHYROXINE SODIUM [Concomitant]
  2. LANSOPRAZOLE [Concomitant]
  3. IODINE NOS [Suspect]
     Indication: PRODUCT USED FOR UNKNOWN INDICATION
  4. OXYCODONE HCL [Concomitant]
  5. LEVOTHYROXINE SODIUM [Concomitant]
     Dosage: ALSO GIVEN AS ELTROXIN 50 MCG DAILY
  6. SIMVASTATIN [Concomitant]
  7. VEMURAFENIB [Suspect]
     Indication: MALIGNANT MELANOMA
     Dosage: LAST DOSE PRIOR TO SAE: 18/JAN/2012
     Route: 048
     Dates: start: 20110721
  8. LACTULOSE [Concomitant]
  9. CRESTOR [Concomitant]
  10. METFORMIN HCL [Concomitant]
  11. TAMSULOSIN HCL [Concomitant]

REACTIONS (3)
  - RENAL FAILURE ACUTE [None]
  - HYPOKINESIA [None]
  - LEFT VENTRICULAR DYSFUNCTION [None]
